FAERS Safety Report 10051623 (Version 1)
Quarter: 2014Q1

REPORT INFORMATION
  Report Type: Spontaneous
  Country: US (occurrence: None)
  Receive Date: 20140331
  Receipt Date: 20140331
  Transmission Date: 20141002
  Serious: Yes (Other)
  Sender: FDA-Public Use
  Company Number: 2014HINOTH0267

PATIENT
  Sex: Female

DRUGS (3)
  1. NEVIRAPINE [Suspect]
     Indication: ANTIRETROVIRAL THERAPY
     Route: 048
  2. TRUVADA (TENOFOVIR DISOPROXIL FOMARATE+EMTRICITABINE) [Concomitant]
  3. EPZICOM (ABACAVIR+LAMIVUDINE) [Concomitant]

REACTIONS (3)
  - Abortion spontaneous [None]
  - Disseminated tuberculosis [None]
  - Exposure during pregnancy [None]
